FAERS Safety Report 21270437 (Version 1)
Quarter: 2022Q3

REPORT INFORMATION
  Report Type: Spontaneous
  Country: US (occurrence: None)
  Receive Date: 20220829
  Receipt Date: 20220829
  Transmission Date: 20221027
  Serious: Yes (Death)
  Sender: FDA-Public Use
  Company Number: None

PATIENT
  Age: 74 Year
  Sex: Male

DRUGS (1)
  1. ABIRATERONE [Suspect]
     Active Substance: ABIRATERONE
     Indication: Prostate cancer
     Dosage: FREQUENCY : DAILY;?
     Route: 048
     Dates: start: 202204, end: 202206

REACTIONS (4)
  - Sepsis [None]
  - Renal failure [None]
  - Bone cancer metastatic [None]
  - Metastases to bladder [None]

NARRATIVE: CASE EVENT DATE: 20220603
